FAERS Safety Report 9919127 (Version 1)
Quarter: 2014Q1

REPORT INFORMATION
  Report Type: Spontaneous
  Country: None (occurrence: US)
  Receive Date: 20140224
  Receipt Date: 20140224
  Transmission Date: 20141002
  Serious: No
  Sender: FDA-Public Use
  Company Number: US-AMARIN PHARMA, INC.-2014AMR000003

PATIENT
  Age: 54 Year
  Sex: Male
  Weight: 86.26 kg

DRUGS (5)
  1. VASCEPA [Suspect]
     Indication: PRODUCT USED FOR UNKNOWN INDICATION
     Route: 065
  2. INSULIN [Concomitant]
     Indication: PRODUCT USED FOR UNKNOWN INDICATION
     Route: 065
  3. BLOOD PRESSURE MEDICINE [Concomitant]
     Indication: BLOOD PRESSURE
     Route: 065
  4. CHOLESTEROL MEDICINE [Concomitant]
     Indication: BLOOD CHOLESTEROL
     Route: 065
  5. STOMACH MEDICINE [Concomitant]
     Indication: GASTRIC DISORDER
     Route: 065

REACTIONS (4)
  - Nausea [Not Recovered/Not Resolved]
  - Product taste abnormal [Unknown]
  - Product odour abnormal [Unknown]
  - Product physical issue [Unknown]
